FAERS Safety Report 5103219-X (Version None)
Quarter: 2006Q3

REPORT INFORMATION
  Report Type: 
  Country: None (occurrence: None)
  Receive Date: 20060911
  Receipt Date: 20060911
  Transmission Date: 20061208
  Serious: No
  Sender: FDA-Public Use
  Company Number: None

PATIENT
  Sex: Female
  Weight: 93.8946 kg

DRUGS (2)
  1. SERTRALINE [Suspect]
     Indication: ANXIETY
     Dosage: 100 MG PO QD
     Route: 048
  2. SERTRALINE [Suspect]
     Indication: DEPRESSION
     Dosage: 100 MG PO QD
     Route: 048

REACTIONS (5)
  - ANXIETY [None]
  - DEPRESSED MOOD [None]
  - HYPERHIDROSIS [None]
  - PRURITUS [None]
  - THERAPEUTIC RESPONSE UNEXPECTED WITH DRUG SUBSTITUTION [None]
